FAERS Safety Report 9902617 (Version 2)
Quarter: 2014Q1

REPORT INFORMATION
  Report Type: Spontaneous
  Country: ES (occurrence: ES)
  Receive Date: 20140217
  Receipt Date: 20140319
  Transmission Date: 20141002
  Serious: Yes (Hospitalization, Other)
  Sender: FDA-Public Use
  Company Number: ES-JNJFOC-20140204042

PATIENT
  Age: 64 Year
  Sex: Female

DRUGS (9)
  1. RISPERDAL [Suspect]
     Indication: BIPOLAR DISORDER
     Dosage: LOW DOSE
     Route: 048
  2. RISPERDAL [Suspect]
     Indication: BIPOLAR DISORDER
     Dosage: 20 TABLETS
     Route: 048
     Dates: start: 20110513, end: 20110515
  3. HALOPERIDOL [Interacting]
     Indication: BIPOLAR DISORDER
     Dosage: LOW DOSE
     Route: 048
  4. HALOPERIDOL [Interacting]
     Indication: BIPOLAR DISORDER
     Route: 048
     Dates: start: 20110513, end: 20110515
  5. ETUMINA [Interacting]
     Indication: BIPOLAR DISORDER
     Route: 048
     Dates: start: 20110513, end: 20110515
  6. ETUMINA [Interacting]
     Indication: BIPOLAR DISORDER
     Dosage: LOW DOSE
     Route: 048
  7. LAMOTRIGINA [Interacting]
     Indication: BIPOLAR DISORDER
     Route: 048
     Dates: start: 20110513, end: 20110515
  8. LAMOTRIGINA [Interacting]
     Indication: BIPOLAR DISORDER
     Dosage: LOW DOSE
     Route: 048
  9. VORICONAZOLE [Suspect]
     Indication: ASPERGILLUS INFECTION
     Route: 065

REACTIONS (5)
  - Neuroleptic malignant syndrome [Recovered/Resolved]
  - Drug interaction [Recovered/Resolved]
  - Aspergillus infection [Unknown]
  - Hyponatraemia [Unknown]
  - Purpura [Unknown]
